FAERS Safety Report 11545976 (Version 2)
Quarter: 2015Q4

REPORT INFORMATION
  Report Type: Report from Study
  Country: HR (occurrence: HR)
  Receive Date: 20150924
  Receipt Date: 20151006
  Transmission Date: 20160304
  Serious: Yes (Hospitalization, Other)
  Sender: FDA-Public Use
  Company Number: HR-ASTELLAS-2015US030853

PATIENT

DRUGS (25)
  1. TACROLIMUS. [Suspect]
     Active Substance: TACROLIMUS
     Route: 065
     Dates: start: 20150330
  2. FASTUM [Concomitant]
     Active Substance: KETOPROFEN
     Indication: PAIN
     Dosage: UNK UNK, UNKNOWN FREQ.
     Route: 065
     Dates: start: 2014
  3. CONTROLOC                          /01263201/ [Concomitant]
     Indication: PROPHYLAXIS
     Route: 048
     Dates: start: 2012
  4. CARDIOPIRIN [Concomitant]
     Active Substance: ASPIRIN
     Indication: THROMBOSIS PROPHYLAXIS
     Route: 048
     Dates: start: 2014
  5. DECORTIN [Suspect]
     Active Substance: PREDNISONE
     Route: 065
     Dates: start: 20140131
  6. DECORTIN [Suspect]
     Active Substance: PREDNISONE
     Route: 065
     Dates: start: 20140520
  7. CELLCEPT [Suspect]
     Active Substance: MYCOPHENOLATE MOFETIL\MYCOPHENOLATE MOFETIL HYDROCHLORIDE
     Indication: PROPHYLAXIS AGAINST TRANSPLANT REJECTION
     Route: 048
     Dates: start: 20120113
  8. OLICARD [Concomitant]
     Indication: CORONARY ARTERY DISEASE
     Route: 048
     Dates: start: 2005
  9. AMLOPIN                            /00972401/ [Concomitant]
     Indication: HYPERTENSION
     Route: 048
     Dates: start: 2012
  10. PREDUCTAL                          /00489601/ [Concomitant]
     Indication: CORONARY ARTERY DISEASE
     Route: 048
     Dates: start: 2005
  11. DECORTIN [Suspect]
     Active Substance: PREDNISONE
     Route: 065
     Dates: start: 20140901
  12. EUTHYROX [Concomitant]
     Active Substance: LEVOTHYROXINE SODIUM
     Indication: HYPOTHYROIDISM
     Dosage: 0.057 MG, UNKNOWN FREQ.
     Route: 048
     Dates: start: 2011
  13. LESCOL [Concomitant]
     Active Substance: FLUVASTATIN SODIUM
     Indication: HYPERLIPIDAEMIA
     Route: 048
     Dates: start: 2012
  14. B VITAMIN COMP                     /00003501/ [Concomitant]
     Indication: PAIN
     Dosage: UNK UNK, UNKNOWN FREQ.
     Route: 048
     Dates: start: 2014
  15. TACROLIMUS. [Suspect]
     Active Substance: TACROLIMUS
     Route: 065
     Dates: start: 20140131
  16. DECORTIN [Suspect]
     Active Substance: PREDNISONE
     Dosage: 05 MG, ONCE DAILY
     Route: 065
     Dates: start: 20150330
  17. TRAMUNDIN IR [Concomitant]
     Indication: PAIN
     Dosage: UNK UNK, UNKNOWN FREQ.
     Route: 048
     Dates: start: 2014
  18. TACROLIMUS. [Suspect]
     Active Substance: TACROLIMUS
     Indication: PROPHYLAXIS AGAINST TRANSPLANT REJECTION
     Route: 048
     Dates: start: 20120113
  19. ZALDIAR [Concomitant]
     Active Substance: ACETAMINOPHEN\TRAMADOL HYDROCHLORIDE
     Indication: PAIN
     Dosage: UNK UNK, UNKNOWN FREQ.
     Route: 048
     Dates: start: 2014
  20. RAMIPRIL. [Concomitant]
     Active Substance: RAMIPRIL
     Indication: HYPERTENSION
     Route: 048
     Dates: start: 2015
  21. TACROLIMUS. [Suspect]
     Active Substance: TACROLIMUS
     Dates: start: 20131128
  22. DECORTIN [Suspect]
     Active Substance: PREDNISONE
     Indication: PROPHYLAXIS AGAINST TRANSPLANT REJECTION
     Route: 048
     Dates: start: 20120113
  23. CONCOR [Concomitant]
     Active Substance: BISOPROLOL FUMARATE
     Indication: HYPERTENSION
     Route: 048
     Dates: start: 2005
  24. PLIVIT D3 [Concomitant]
     Active Substance: CHOLECALCIFEROL
     Indication: RENAL OSTEODYSTROPHY
     Dosage: UNK UNK, UNKNOWN FREQ.
     Route: 048
     Dates: start: 2014
  25. KOGREL [Concomitant]
     Indication: PROPHYLAXIS
     Route: 048
     Dates: start: 2015

REACTIONS (1)
  - Acute myocardial infarction [Recovered/Resolved]

NARRATIVE: CASE EVENT DATE: 20141224
